FAERS Safety Report 13782630 (Version 5)
Quarter: 2018Q1

REPORT INFORMATION
  Report Type: Spontaneous
  Country: FR (occurrence: FR)
  Receive Date: 20170724
  Receipt Date: 20180305
  Transmission Date: 20180508
  Serious: Yes (Hospitalization, Other)
  Sender: FDA-Public Use
  Company Number: FR-SA-2017SA129063

PATIENT
  Age: 67 Year
  Sex: Female

DRUGS (13)
  1. METFORMIN [Concomitant]
     Active Substance: METFORMIN HYDROCHLORIDE
     Indication: DIABETES MELLITUS
     Route: 065
  2. ATORVASTATIN [Concomitant]
     Active Substance: ATORVASTATIN
     Route: 065
  3. URAPIDIL [Concomitant]
     Active Substance: URAPIDIL
     Route: 065
  4. NICARDIPINE [Interacting]
     Active Substance: NICARDIPINE
     Indication: HYPERTENSION
     Route: 065
  5. ALFUZOSIN HYDROCHLORIDE. [Suspect]
     Active Substance: ALFUZOSIN HYDROCHLORIDE
     Indication: HYPERTENSION
     Route: 065
  6. IRBESARTAN. [Concomitant]
     Active Substance: IRBESARTAN
     Route: 065
  7. RIFAMPICIN [Suspect]
     Active Substance: RIFAMPIN
     Indication: ARTHRITIS BACTERIAL
     Route: 048
  8. ALPRAZOLAM. [Concomitant]
     Active Substance: ALPRAZOLAM
     Route: 065
  9. HYDROCHLOROTHIAZIDE. [Concomitant]
     Active Substance: HYDROCHLOROTHIAZIDE
     Route: 065
  10. ESOMEPRAZOLE [Concomitant]
     Active Substance: ESOMEPRAZOLE
     Route: 065
  11. TEICOPLANIN [Concomitant]
     Active Substance: TEICOPLANIN
     Indication: ARTHRITIS BACTERIAL
     Route: 058
  12. ISRADIPINE. [Concomitant]
     Active Substance: ISRADIPINE
     Route: 065
  13. ASPIRIN. [Concomitant]
     Active Substance: ASPIRIN
     Route: 065

REACTIONS (5)
  - Off label use [Unknown]
  - Drug interaction [Unknown]
  - Posterior reversible encephalopathy syndrome [Unknown]
  - Hypertension [Recovering/Resolving]
  - Status epilepticus [Unknown]
